FAERS Safety Report 19449350 (Version 1)
Quarter: 2021Q2

REPORT INFORMATION
  Report Type: Report from Study
  Country: CA (occurrence: CA)
  Receive Date: 20210622
  Receipt Date: 20210622
  Transmission Date: 20210717
  Serious: Yes (Other)
  Sender: FDA-Public Use
  Company Number: CA-ASTRAZENECA-2021A465140

PATIENT
  Sex: Female

DRUGS (1)
  1. TAGRISSO [Suspect]
     Active Substance: OSIMERTINIB
     Indication: NON-SMALL CELL LUNG CANCER
     Route: 048
     Dates: start: 20200616, end: 20210226

REACTIONS (5)
  - Metastases to liver [Unknown]
  - Metastases to bone [Unknown]
  - Drug ineffective [Unknown]
  - Allergy to chemicals [Unknown]
  - Malignant neoplasm progression [Not Recovered/Not Resolved]
